FAERS Safety Report 8585938-6 (Version None)
Quarter: 2012Q3

REPORT INFORMATION
  Report Type: 
  Country: None (occurrence: None)
  Receive Date: 20120810
  Receipt Date: 20120807
  Transmission Date: 20120928
  Serious: Yes (Other)
  Sender: FDA-Public Use
  Company Number: US-PFIZER INC-2012159482

PATIENT
  Age: 23 Year
  Sex: Female
  Weight: 45.351 kg

DRUGS (4)
  1. CLEOCIN HYDROCHLORIDE [Suspect]
     Indication: PNEUMONIA ASPIRATION
     Dosage: 600 MG, 3X/DAY
     Route: 042
     Dates: start: 20120627
  2. ZEGERID [Concomitant]
     Indication: GASTROOESOPHAGEAL REFLUX DISEASE
     Dosage: 20 MG, 2X/DAY
  3. KEPPRA [Concomitant]
     Indication: CONVULSION
     Dosage: 500 MG, 2X/DAY
  4. LACOSAMIDE [Concomitant]
     Indication: CONVULSION
     Dosage: 50 MG, 2X/DAY

REACTIONS (1)
  - RENAL FAILURE [None]
